FAERS Safety Report 8711759 (Version 5)
Quarter: 2012Q4

REPORT INFORMATION
  Report Type: 
  Country: FR (occurrence: FR)
  Receive Date: 20120807
  Receipt Date: 20121002
  Transmission Date: 20130627
  Serious: Yes (Other)
  Sender: FDA-Public Use
  Company Number: FR-UCBSA-062875

PATIENT
  Age: 37 Year
  Sex: Male
  Weight: 62.8 kg

DRUGS (7)
  1. KEPPRA [Suspect]
     Route: 048
     Dates: start: 20120726, end: 20120731
  2. KEPPRA [Suspect]
     Dosage: DAILY DOSE-250+ 500 MG DAILY
     Route: 048
     Dates: start: 20120731, end: 20120805
  3. XYZAL [Suspect]
     Indication: URTICARIA PAPULAR
     Dates: start: 201207
  4. ARIXTRA [Suspect]
     Indication: THROMBOSIS PROPHYLAXIS
     Route: 058
     Dates: start: 20120616
  5. BACLOFENE [Concomitant]
     Dosage: 5 UNITS DAILY
     Dates: start: 20120726
  6. DOLIPRANE [Concomitant]
     Dosage: DAILY DOSE-4 G
     Dates: start: 20120726
  7. BISOCE [Concomitant]
     Dosage: DAILY DOSE-5 MG
     Dates: start: 20120726

REACTIONS (6)
  - Rash generalised [Recovering/Resolving]
  - Pruritus generalised [Recovered/Resolved]
  - Confabulation [Recovered/Resolved]
  - Presyncope [Recovered/Resolved]
  - Hypotension [Recovered/Resolved]
  - Somnolence [Unknown]
